FAERS Safety Report 6532044-8 (Version None)
Quarter: 2010Q1

REPORT INFORMATION
  Report Type: 
  Country: None (occurrence: None)
  Receive Date: 20100107
  Receipt Date: 20100107
  Transmission Date: 20100710
  Serious: Yes (Life-Threatening, Hospitalization)
  Sender: FDA-Public Use
  Company Number: None

PATIENT
  Age: 63 Year
  Sex: Female
  Weight: 43.0917 kg

DRUGS (2)
  1. RIFAMPIN [Suspect]
     Indication: TUBERCULOSIS
     Dosage: 2 PILLS ONCE A DAY PO
     Route: 048
     Dates: start: 20091214, end: 20091221
  2. ETHAMBUTOL 400 MG [Suspect]
     Indication: TUBERCULOSIS
     Dosage: 2 PILLS ONCE A DAY PO
     Route: 049
     Dates: start: 20091214, end: 20091221

REACTIONS (7)
  - ARTHRALGIA [None]
  - BLOOD POTASSIUM INCREASED [None]
  - DIARRHOEA [None]
  - HEADACHE [None]
  - PRURITUS [None]
  - PYREXIA [None]
  - RENAL FAILURE [None]
